FAERS Safety Report 17667474 (Version 2)
Quarter: 2020Q2

REPORT INFORMATION
  Report Type: Spontaneous
  Country: SE (occurrence: SE)
  Receive Date: 20200414
  Receipt Date: 20200605
  Transmission Date: 20200713
  Serious: Yes (Death)
  Sender: FDA-Public Use
  Company Number: SE-PFIZER INC-2020154021

PATIENT
  Age: 66 Year
  Sex: Female

DRUGS (1)
  1. CHAMPIX [Suspect]
     Active Substance: VARENICLINE TARTRATE
     Indication: SMOKING CESSATION THERAPY
     Dosage: UNK

REACTIONS (7)
  - Sepsis [Fatal]
  - Suspected COVID-19 [Unknown]
  - Muscle spasms [Unknown]
  - Pallor [Unknown]
  - Dyspnoea [Unknown]
  - Contusion [Unknown]
  - Cold sweat [Unknown]

NARRATIVE: CASE EVENT DATE: 20200411
